FAERS Safety Report 23083291 (Version 4)
Quarter: 2023Q4

REPORT INFORMATION
  Report Type: Spontaneous
  Country: RS (occurrence: RS)
  Receive Date: 20231019
  Receipt Date: 20231103
  Transmission Date: 20240110
  Serious: Yes (Other)
  Sender: FDA-Public Use
  Company Number: RS-009507513-2310SRB003593

PATIENT
  Age: 72 Year
  Sex: Male

DRUGS (1)
  1. ZERBAXA [Suspect]
     Active Substance: CEFTOLOZANE SULFATE\TAZOBACTAM SODIUM
     Indication: Pseudomonas infection
     Dosage: 750 MG (500/250MG) EVERY 8 HOURS
     Dates: start: 202304, end: 202304

REACTIONS (3)
  - Sepsis [Recovered/Resolved]
  - Pathogen resistance [Unknown]
  - General physical health deterioration [Unknown]

NARRATIVE: CASE EVENT DATE: 20230101
